FAERS Safety Report 10339634 (Version 1)
Quarter: 2014Q3

REPORT INFORMATION
  Report Type: Spontaneous
  Country: US (occurrence: None)
  Receive Date: 20140723
  Receipt Date: 20140723
  Transmission Date: 20150326
  Serious: No
  Sender: FDA-Public Use
  Company Number: None

PATIENT
  Age: 4 Year
  Sex: Female
  Weight: 17.69 kg

DRUGS (5)
  1. OXYBUTYNIN CHLORIDE. [Suspect]
     Active Substance: OXYBUTYNIN CHLORIDE
     Indication: POLLAKIURIA
  2. OXYBUTYNIN CHLORIDE. [Suspect]
     Active Substance: OXYBUTYNIN CHLORIDE
     Indication: INCONTINENCE
  3. OXYBUTYNIN CHLORIDE. [Suspect]
     Active Substance: OXYBUTYNIN CHLORIDE
     Indication: BLADDER DISORDER
  4. FLINSTONES COMPLETE MULTIVITAMIN [Concomitant]
  5. FLOURIDE [Concomitant]

REACTIONS (8)
  - Pruritus [None]
  - Wound [None]
  - Pain [None]
  - Arthralgia [None]
  - Scratch [None]
  - Rash [None]
  - Abdominal pain upper [None]
  - Eye pain [None]

NARRATIVE: CASE EVENT DATE: 20140128
